FAERS Safety Report 11008299 (Version 1)
Quarter: 2015Q2

REPORT INFORMATION
  Report Type: Spontaneous
  Country: NO (occurrence: NO)
  Receive Date: 20150410
  Receipt Date: 20150410
  Transmission Date: 20150821
  Serious: Yes (Other)
  Sender: FDA-Public Use
  Company Number: NO-BAYER-2015-117443

PATIENT
  Age: 22 Year
  Sex: Female
  Weight: 75 kg

DRUGS (2)
  1. NUVARING [Suspect]
     Active Substance: ETHINYL ESTRADIOL\ETONOGESTREL
     Dosage: .12 MG, Q1MON
     Dates: start: 20141021, end: 20141129
  2. YASMIN [Suspect]
     Active Substance: DROSPIRENONE\ETHINYL ESTRADIOL
     Dosage: 3 MG, QD
     Dates: start: 20030101, end: 20061201

REACTIONS (3)
  - Depression [Unknown]
  - Orgasmic sensation decreased [None]
  - Libido decreased [Recovered/Resolved]

NARRATIVE: CASE EVENT DATE: 20030301
